FAERS Safety Report 7509291-1 (Version None)
Quarter: 2011Q2

REPORT INFORMATION
  Report Type: 
  Country: None (occurrence: None)
  Receive Date: 20110527
  Receipt Date: 20110523
  Transmission Date: 20111010
  Serious: Yes (Hospitalization)
  Sender: FDA-Public Use
  Company Number: US-ROCHE-774363

PATIENT
  Sex: Female
  Weight: 43.7 kg

DRUGS (5)
  1. ALBUTEROL SULFATE AUTOHALER [Concomitant]
     Dosage: NAME: ROTOHALER ALBUTEROL 0.083%
  2. ZANTAC [Concomitant]
  3. BEVACIZUMAB [Suspect]
     Route: 042
     Dates: start: 20110316, end: 20110413
  4. BENTYL [Concomitant]
     Dosage: BENTYL AFRIN LORAZEPAM
  5. PACLITAXEL [Suspect]
     Dosage: DRUG: NAB PACLITAXEL
     Route: 042
     Dates: start: 20110316, end: 20110413

REACTIONS (5)
  - DYSTHYMIC DISORDER [None]
  - FAILURE TO THRIVE [None]
  - FATIGUE [None]
  - MALAISE [None]
  - DEPRESSION [None]
